FAERS Safety Report 19625797 (Version 2)
Quarter: 2021Q4

REPORT INFORMATION
  Report Type: Report from Study
  Country: US (occurrence: None)
  Receive Date: 20210729
  Receipt Date: 20211215
  Transmission Date: 20220303
  Serious: Yes (Hospitalization, Other)
  Sender: FDA-Public Use
  Company Number: US-ROCHE-2877617

PATIENT
  Age: 61 Year
  Sex: Male
  Weight: 77.7 kg

DRUGS (3)
  1. VENETOCLAX [Suspect]
     Active Substance: VENETOCLAX
     Indication: Chronic lymphocytic leukaemia
     Dosage: 20 MG PO QD DAYS 1-7 CYCLE 3, 50 MG PO QD DAYS 8-14, CYCLE 3, 100 MG PO QD DAYS 15-21, CYCLE 3, 200
     Route: 048
     Dates: start: 20190909
  2. OBINUTUZUMAB [Suspect]
     Active Substance: OBINUTUZUMAB
     Indication: Chronic lymphocytic leukaemia
     Dosage: 100 MG IV ON DAY 1, CYCLE 1, 900 MG IV ON DAY 2, CYCLE 1, 1000 MG IV ON DAY 8, CYCLE 1, 1000 MG IV O
     Route: 042
     Dates: start: 20190909
  3. IBRUTINIB [Suspect]
     Active Substance: IBRUTINIB
     Indication: Chronic lymphocytic leukaemia
     Dosage: ON DAYS 1-28, CYCLES 1-19?LAST DOSE OF IBRUTINIB ON 22/FEB/2021 (TOTAL DOSE ADMINISTERED WAS 420 MG)
     Route: 048
     Dates: start: 20190909

REACTIONS (2)
  - COVID-19 pneumonia [Not Recovered/Not Resolved]
  - Dyspnoea [Unknown]

NARRATIVE: CASE EVENT DATE: 20210709
